FAERS Safety Report 25957374 (Version 1)
Quarter: 2025Q4

REPORT INFORMATION
  Report Type: Spontaneous
  Country: EU (occurrence: EU)
  Receive Date: 20251024
  Receipt Date: 20251024
  Transmission Date: 20260117
  Serious: Yes (Life-Threatening, Hospitalization)
  Sender: NOVARTIS
  Company Number: None

PATIENT
  Age: 30 Year
  Sex: Male

DRUGS (2)
  1. CYCLOSPORINE [Suspect]
     Active Substance: CYCLOSPORINE
     Indication: Complications of transplant surgery
     Dosage: UNK
     Route: 048
     Dates: start: 199601
  2. PREDNISONE [Concomitant]
     Active Substance: PREDNISONE
     Indication: Complications of transplant surgery
     Dosage: UNK
     Route: 048
     Dates: start: 199601

REACTIONS (1)
  - Coombs positive haemolytic anaemia [Recovered/Resolved]

NARRATIVE: CASE EVENT DATE: 19960301
